FAERS Safety Report 7357650-2 (Version None)
Quarter: 2011Q1

REPORT INFORMATION
  Report Type: 
  Country: None (occurrence: None)
  Receive Date: 20110317
  Receipt Date: 20110310
  Transmission Date: 20110831
  Serious: Yes (Hospitalization, Other)
  Sender: FDA-Public Use
  Company Number: US-ELI_LILLY_AND_COMPANY-US201004000418

PATIENT
  Sex: Female

DRUGS (6)
  1. OMEPRAZOLE [Concomitant]
  2. GLYBURIDE [Concomitant]
  3. BENADRYL [Concomitant]
  4. TRAMADOLE [Concomitant]
  5. FORTEO [Suspect]
     Dosage: 20 UG, DAILY (1/D)
  6. FORTEO [Suspect]
     Indication: OSTEOPOROSIS
     Dosage: 20 UG, DAILY (1/D)
     Route: 065
     Dates: start: 20090701

REACTIONS (4)
  - JOINT RANGE OF MOTION DECREASED [None]
  - NECK PAIN [None]
  - INJECTION SITE ERYTHEMA [None]
  - FRACTURE NONUNION [None]
